FAERS Safety Report 19115180 (Version 3)
Quarter: 2021Q2

REPORT INFORMATION
  Report Type: Spontaneous
  Country: US (occurrence: US)
  Receive Date: 20210408
  Receipt Date: 20210422
  Transmission Date: 20210717
  Serious: No
  Sender: FDA-Public Use
  Company Number: US-SA-2021SA113805

PATIENT
  Sex: Female

DRUGS (1)
  1. AUBAGIO [Suspect]
     Active Substance: TERIFLUNOMIDE
     Dosage: UNK
     Route: 048

REACTIONS (4)
  - Condition aggravated [Unknown]
  - Alopecia [Unknown]
  - Gastrointestinal disorder [Unknown]
  - Mobility decreased [Unknown]
